FAERS Safety Report 5590655-0 (Version None)
Quarter: 2008Q1

REPORT INFORMATION
  Report Type: 
  Country: None (occurrence: None)
  Receive Date: 20080114
  Receipt Date: 20080104
  Transmission Date: 20080703
  Serious: Yes (Hospitalization)
  Sender: FDA-Public Use
  Company Number: FR-MERCK-0711FRA00106

PATIENT
  Age: 68 Year
  Sex: Female

DRUGS (2)
  1. FOSAMAX [Suspect]
     Indication: OSTEOPOROSIS
     Route: 048
     Dates: start: 20061101, end: 20071128
  2. ASPIRIN [Concomitant]
     Indication: THROMBOSIS PROPHYLAXIS
     Route: 048

REACTIONS (1)
  - LARGE INTESTINAL ULCER [None]
